FAERS Safety Report 25526372 (Version 1)
Quarter: 2025Q3

REPORT INFORMATION
  Report Type: Spontaneous
  Country: US (occurrence: US)
  Receive Date: 20250707
  Receipt Date: 20250707
  Transmission Date: 20251020
  Serious: Yes (Death, Hospitalization)
  Sender: MYLAN
  Company Number: US-MYLANLABS-2025M1055019

PATIENT
  Age: 68 Year
  Sex: Male

DRUGS (5)
  1. ACETAMINOPHEN [Suspect]
     Active Substance: ACETAMINOPHEN
     Indication: Product used for unknown indication
  2. ACETYLCYSTEINE [Suspect]
     Active Substance: ACETYLCYSTEINE
     Indication: Acute hepatic failure
  3. MIDODRINE [Suspect]
     Active Substance: MIDODRINE
     Indication: Hypotension
  4. NOREPINEPHRINE [Suspect]
     Active Substance: NOREPINEPHRINE
     Indication: Hypotension
  5. RIFAXIMIN [Suspect]
     Active Substance: RIFAXIMIN
     Indication: Metabolic encephalopathy

REACTIONS (11)
  - Acute hepatic failure [Fatal]
  - Overdose [Fatal]
  - Toxicity to various agents [Fatal]
  - Upper gastrointestinal haemorrhage [Fatal]
  - Metabolic encephalopathy [Fatal]
  - Renal failure [Fatal]
  - Coagulopathy [Fatal]
  - Hypotension [Fatal]
  - Haematoma [Fatal]
  - Shock [Fatal]
  - Drug ineffective [Fatal]
